FAERS Safety Report 8545279-X (Version None)
Quarter: 2012Q3

REPORT INFORMATION
  Report Type: 
  Country: None (occurrence: None)
  Receive Date: 20120719
  Receipt Date: 20120719
  Transmission Date: 20120928
  Serious: Yes (Hospitalization)
  Sender: FDA-Public Use
  Company Number: None

PATIENT
  Age: 67 Year
  Sex: Male
  Weight: 109.9 kg

DRUGS (1)
  1. VANCOMYCIN [Suspect]
     Indication: INFECTION
     Dosage: 750 MG EVERY DAY IV
     Route: 042
     Dates: start: 20120625, end: 20120716

REACTIONS (2)
  - DRUG LEVEL ABOVE THERAPEUTIC [None]
  - RENAL FAILURE ACUTE [None]
